FAERS Safety Report 4339522-0 (Version None)
Quarter: 2004Q2

REPORT INFORMATION
  Report Type: 
  Country: None (occurrence: None)
  Receive Date: 20040412
  Receipt Date: 20040325
  Transmission Date: 20050107
  Serious: No
  Sender: FDA-Public Use
  Company Number: 2004US002063

PATIENT
  Age: 47 Year
  Sex: Female
  Weight: 59.6 kg

DRUGS (18)
  1. ALOXI [Suspect]
     Indication: PROPHYLAXIS OF NAUSEA AND VOMITING
     Dosage: 0.25 MG, SINGLE, INTRAVENOUS
     Route: 042
     Dates: start: 20040322, end: 20040322
  2. DEXAMETHASONE [Concomitant]
  3. SODIUM CHLORIDE [Concomitant]
  4. ZANTAC [Concomitant]
  5. BENADRYL ^WARNER-LAMBERT^ (DIPHENHYDRAMINE HYDROCHLORIDE) [Concomitant]
  6. AMBIEN [Concomitant]
  7. COUMADIN [Concomitant]
  8. DIFLUCAN [Concomitant]
  9. DECADRON [Concomitant]
  10. GLUTAMINE (LEVOGLUTAMIDE) [Concomitant]
  11. VITAMIN B6 [Concomitant]
  12. LOMOTIL [Concomitant]
  13. NEUPOGEN [Concomitant]
  14. PRILOSEC [Concomitant]
  15. PROCHLORPERAZINE [Concomitant]
  16. SYNTHROID [Concomitant]
  17. VALTREX [Concomitant]
  18. ZOLOFT [Concomitant]

REACTIONS (4)
  - CHEST DISCOMFORT [None]
  - ERYTHEMA [None]
  - HEART RATE INCREASED [None]
  - HYPERSENSITIVITY [None]
